FAERS Safety Report 12237648 (Version 1)
Quarter: 2016Q2

REPORT INFORMATION
  Report Type: Spontaneous
  Country: US (occurrence: None)
  Receive Date: 20160404
  Receipt Date: 20160404
  Transmission Date: 20160815
  Serious: Yes (Other)
  Sender: FDA-Public Use
  Company Number: None

PATIENT
  Age: 41 Year
  Sex: Female

DRUGS (1)
  1. HUMIRA [Suspect]
     Active Substance: ADALIMUMAB
     Indication: RHEUMATOID ARTHRITIS
     Dosage: SUBCUTANEOUS 057 INJECTABLE O OTHER WEEK
     Route: 058
     Dates: start: 20150330, end: 20160331

REACTIONS (2)
  - Therapy cessation [None]
  - Gastric bypass [None]

NARRATIVE: CASE EVENT DATE: 20160331
